FAERS Safety Report 25184160 (Version 1)
Quarter: 2025Q2

REPORT INFORMATION
  Report Type: Spontaneous
  Country: US (occurrence: None)
  Receive Date: 20250410
  Receipt Date: 20250410
  Transmission Date: 20250716
  Serious: No
  Sender: FDA-CTU
  Company Number: None

PATIENT
  Age: 66 Year
  Sex: Female

DRUGS (1)
  1. DUPIXENT [Suspect]
     Active Substance: DUPILUMAB
     Indication: Asthma
     Dosage: OTHER STRENGTH : 200/1.14 MG/ML;?OTHER QUANTITY : 200/1.14 MG/ML;?FREQUENCY : EVERY OTHER WEEK;?
     Route: 058
     Dates: start: 20250203, end: 20250402

REACTIONS (2)
  - Vision blurred [None]
  - Muscular weakness [None]

NARRATIVE: CASE EVENT DATE: 20250331
